FAERS Safety Report 16022296 (Version 2)
Quarter: 2024Q1

REPORT INFORMATION
  Report Type: Spontaneous
  Country: CA (occurrence: CA)
  Receive Date: 20190301
  Receipt Date: 20240123
  Transmission Date: 20240410
  Serious: Yes (Hospitalization, Other)
  Sender: FDA-Public Use
  Company Number: CA-AUROBINDO-AUR-APL-2019-010362

PATIENT
  Age: 28 Year
  Sex: Male

DRUGS (3)
  1. DONEPEZIL [Suspect]
     Active Substance: DONEPEZIL
     Indication: Cognitive disorder
     Dosage: 15 MILLIGRAM
     Route: 065
  2. DONEPEZIL [Suspect]
     Active Substance: DONEPEZIL
     Dosage: 10 MILLIGRAM
     Route: 065
  3. DONEPEZIL [Suspect]
     Active Substance: DONEPEZIL
     Dosage: 5 MILLIGRAM
     Route: 065

REACTIONS (12)
  - Diarrhoea [Recovered/Resolved]
  - Mania [Recovered/Resolved]
  - Abnormal behaviour [Recovered/Resolved]
  - Agitation [Recovered/Resolved]
  - Inappropriate affect [Recovered/Resolved]
  - Flight of ideas [Recovered/Resolved]
  - Obsessive thoughts [Recovered/Resolved]
  - Pressure of speech [Recovered/Resolved]
  - Psychomotor hyperactivity [Recovered/Resolved]
  - Sleep disorder [Recovered/Resolved]
  - Drug diversion [Recovered/Resolved]
  - Intentional product misuse [Recovered/Resolved]
